FAERS Safety Report 4612576-X (Version None)
Quarter: 2005Q1

REPORT INFORMATION
  Report Type: 
  Country: None (occurrence: None)
  Receive Date: 20050318
  Receipt Date: 20050308
  Transmission Date: 20050727
  Serious: Yes (Hospitalization)
  Sender: FDA-Public Use
  Company Number: DE-BRISTOL-MYERS SQUIBB COMPANY-12891685

PATIENT
  Age: 78 Year
  Sex: Male
  Weight: 126 kg

DRUGS (9)
  1. CISPLATIN [Suspect]
     Indication: NON-SMALL CELL LUNG CANCER
     Route: 051
     Dates: start: 20041020, end: 20041020
  2. PEMETREXED DISODIUM [Suspect]
     Indication: NON-SMALL CELL LUNG CANCER
     Route: 051
     Dates: start: 20041020, end: 20041020
  3. KEVATRIL [Suspect]
     Indication: PROPHYLAXIS OF NAUSEA AND VOMITING
     Route: 042
     Dates: start: 20041020, end: 20041021
  4. VITAMIN B-12 [Concomitant]
     Indication: PROPHYLAXIS
     Dates: start: 20040929
  5. LAFOL [Concomitant]
     Indication: PROPHYLAXIS
     Dates: start: 20040929
  6. DEXAMETHASONE [Concomitant]
     Indication: PROPHYLAXIS
     Dates: start: 20041019, end: 20041204
  7. ENALAPRIL [Concomitant]
     Indication: HYPERTENSION
  8. GLUCOPHAGE [Concomitant]
     Indication: DIABETES MELLITUS
  9. L-THYROXINE [Concomitant]
     Dosage: DOSE:  100 UG

REACTIONS (4)
  - CONSTIPATION [None]
  - DIARRHOEA [None]
  - PROCTALGIA [None]
  - PROCTITIS [None]
